FAERS Safety Report 10703653 (Version 1)
Quarter: 2015Q1

REPORT INFORMATION
  Report Type: Spontaneous
  Country: FR (occurrence: FR)
  Receive Date: 20150112
  Receipt Date: 20150112
  Transmission Date: 20150721
  Serious: Yes (Life-Threatening, Hospitalization, Disabling)
  Sender: FDA-Public Use
  Company Number: FR-JNJFOC-20150101971

PATIENT
  Age: 94 Year
  Sex: Female

DRUGS (17)
  1. XARELTO [Suspect]
     Active Substance: RIVAROXABAN
     Indication: CEREBROVASCULAR ACCIDENT PROPHYLAXIS
     Route: 048
     Dates: end: 20141206
  2. SERTRALINE [Concomitant]
     Active Substance: SERTRALINE HYDROCHLORIDE
     Indication: DEPRESSION
     Route: 048
     Dates: end: 20141206
  3. LASILIX [Concomitant]
     Active Substance: FUROSEMIDE
     Indication: BRAIN NATRIURETIC PEPTIDE INCREASED
     Route: 042
     Dates: start: 20141129
  4. EUPANTOL [Concomitant]
     Active Substance: PANTOPRAZOLE SODIUM
     Route: 065
     Dates: end: 20141207
  5. IDEOS [Concomitant]
     Active Substance: CALCIUM CARBONATE\CHOLECALCIFEROL
     Route: 065
  6. ATENOLOL. [Concomitant]
     Active Substance: ATENOLOL
     Route: 065
  7. BISOPROLOL [Concomitant]
     Active Substance: BISOPROLOL
     Indication: ATRIAL FIBRILLATION
     Route: 048
     Dates: end: 20141207
  8. INIPOMP [Concomitant]
     Active Substance: PANTOPRAZOLE SODIUM
     Route: 065
  9. LERCAN [Concomitant]
     Active Substance: LERCANIDIPINE
     Route: 065
  10. ZOLPIDEM [Concomitant]
     Active Substance: ZOLPIDEM\ZOLPIDEM TARTRATE
     Route: 065
  11. AUGMENTIN [Concomitant]
     Active Substance: AMOXICILLIN\CLAVULANATE POTASSIUM
     Indication: SEPSIS
     Route: 048
     Dates: start: 20141129
  12. XARELTO [Suspect]
     Active Substance: RIVAROXABAN
     Indication: ATRIAL FIBRILLATION
     Route: 048
     Dates: end: 20141206
  13. RISORDAN [Concomitant]
     Active Substance: ISOSORBIDE DINITRATE
     Indication: BRAIN NATRIURETIC PEPTIDE INCREASED
     Route: 065
  14. AUGMENTIN [Concomitant]
     Active Substance: AMOXICILLIN\CLAVULANATE POTASSIUM
     Indication: SEPSIS
     Route: 048
     Dates: start: 20141130, end: 20141206
  15. GANFORT [Concomitant]
     Active Substance: BIMATOPROST\TIMOLOL
     Route: 065
  16. AUGMENTIN [Concomitant]
     Active Substance: AMOXICILLIN\CLAVULANATE POTASSIUM
     Indication: LUNG INFECTION
     Route: 048
     Dates: start: 20141130, end: 20141206
  17. AUGMENTIN [Concomitant]
     Active Substance: AMOXICILLIN\CLAVULANATE POTASSIUM
     Indication: LUNG INFECTION
     Route: 048
     Dates: start: 20141129

REACTIONS (1)
  - Cerebrovascular accident [Not Recovered/Not Resolved]

NARRATIVE: CASE EVENT DATE: 20141205
